FAERS Safety Report 13501758 (Version 4)
Quarter: 2018Q1

REPORT INFORMATION
  Report Type: Report from Study
  Country: JP (occurrence: JP)
  Receive Date: 20170502
  Receipt Date: 20180101
  Transmission Date: 20180508
  Serious: Yes (Other)
  Sender: FDA-Public Use
  Company Number: JP-AMGEN-JPNNI2017064336

PATIENT
  Age: 47 Year
  Sex: Female

DRUGS (59)
  1. CARFILZOMIB [Suspect]
     Active Substance: CARFILZOMIB
     Dosage: 37.94 MG, UNK
     Route: 041
     Dates: start: 20161006, end: 20161007
  2. CARFILZOMIB [Suspect]
     Active Substance: CARFILZOMIB
     Dosage: 37.94 MG, UNK
     Route: 041
     Dates: start: 20161027, end: 20161028
  3. CARFILZOMIB [Suspect]
     Active Substance: CARFILZOMIB
     Dosage: 37.94 MG, UNK
     Route: 041
     Dates: start: 20170314, end: 20170315
  4. CARFILZOMIB [Suspect]
     Active Substance: CARFILZOMIB
     Dosage: 37.94 MG, UNK
     Route: 041
     Dates: start: 20170510, end: 20170510
  5. CARFILZOMIB [Suspect]
     Active Substance: CARFILZOMIB
     Dosage: 37.94 MG, UNK
     Route: 041
     Dates: start: 20170524, end: 20170524
  6. DEXAMETHASONE. [Concomitant]
     Active Substance: DEXAMETHASONE
     Dosage: 4 MG, UNK
     Dates: start: 20161007, end: 20161007
  7. DEXAMETHASONE. [Concomitant]
     Active Substance: DEXAMETHASONE
     Dosage: 40 MG, UNK
     Dates: start: 20161027, end: 20161027
  8. REVLIMID [Suspect]
     Active Substance: LENALIDOMIDE
     Dosage: 15 MG, UNK
     Route: 048
     Dates: start: 20170413, end: 20170503
  9. DEXAMETHASONE. [Concomitant]
     Active Substance: DEXAMETHASONE
     Dosage: 4 MG, UNK
     Dates: start: 20160909, end: 20160909
  10. DEXAMETHASONE. [Concomitant]
     Active Substance: DEXAMETHASONE
     Dosage: 4 MG, UNK
     Dates: start: 20161014, end: 20161014
  11. DEXAMETHASONE. [Concomitant]
     Active Substance: DEXAMETHASONE
     Dosage: 40 MG, UNK
     Dates: start: 20170331, end: 20170331
  12. DEXAMETHASONE. [Concomitant]
     Active Substance: DEXAMETHASONE
     Dosage: 40 MG, UNK
     Dates: start: 20170510, end: 20170510
  13. DEXAMETHASONE. [Concomitant]
     Active Substance: DEXAMETHASONE
     Dosage: 40 MG, UNK
     Dates: start: 20170524, end: 20170524
  14. CARFILZOMIB [Suspect]
     Active Substance: CARFILZOMIB
     Dosage: 37.94 MG, UNK
     Route: 041
     Dates: start: 20170419, end: 20170419
  15. CARFILZOMIB [Suspect]
     Active Substance: CARFILZOMIB
     Dosage: 37.94 MG, UNK
     Route: 041
     Dates: start: 20170517, end: 20170517
  16. REVLIMID [Suspect]
     Active Substance: LENALIDOMIDE
     Dosage: 5 MG, UNK
     Route: 048
     Dates: start: 20160929, end: 20161019
  17. REVLIMID [Suspect]
     Active Substance: LENALIDOMIDE
     Dosage: 25 MG, UNK
     Route: 048
     Dates: start: 20170314, end: 20170406
  18. DEXAMETHASONE. [Concomitant]
     Active Substance: DEXAMETHASONE
     Dosage: 40 MG, UNK
     Dates: start: 20160915, end: 20160915
  19. DEXAMETHASONE. [Concomitant]
     Active Substance: DEXAMETHASONE
     Dosage: 40 MG, UNK
     Dates: start: 20161103, end: 20161103
  20. CARFILZOMIB [Suspect]
     Active Substance: CARFILZOMIB
     Dosage: 37.94 MG, UNK
     Route: 041
     Dates: start: 20160929, end: 20160930
  21. CARFILZOMIB [Suspect]
     Active Substance: CARFILZOMIB
     Dosage: 37.94 MG, UNK
     Route: 041
     Dates: start: 20161103, end: 20161104
  22. CARFILZOMIB [Suspect]
     Active Substance: CARFILZOMIB
     Indication: PLASMA CELL MYELOMA
     Dosage: 27.98 MG, UNK
     Route: 041
     Dates: start: 20160901, end: 20160902
  23. CARFILZOMIB [Suspect]
     Active Substance: CARFILZOMIB
     Dosage: 37.77 MG, UNK
     Route: 041
     Dates: start: 20160915, end: 20160916
  24. CARFILZOMIB [Suspect]
     Active Substance: CARFILZOMIB
     Dosage: 37.94 MG, UNK
     Route: 041
     Dates: start: 20161013, end: 20161014
  25. CARFILZOMIB [Suspect]
     Active Substance: CARFILZOMIB
     Dosage: 37.94 MG, UNK
     Route: 041
     Dates: start: 20170412, end: 20170412
  26. DEXAMETHASONE. [Concomitant]
     Active Substance: DEXAMETHASONE
     Dosage: 40 MG, UNK
     Dates: start: 20160901, end: 20160901
  27. DEXAMETHASONE. [Concomitant]
     Active Substance: DEXAMETHASONE
     Dosage: 4 MG, UNK
     Dates: start: 20160902, end: 20160902
  28. DEXAMETHASONE. [Concomitant]
     Active Substance: DEXAMETHASONE
     Dosage: 40 MG, UNK
     Dates: start: 20160908, end: 20160908
  29. DEXAMETHASONE. [Concomitant]
     Active Substance: DEXAMETHASONE
     Dosage: 4 MG, UNK
     Dates: start: 20170325, end: 20170325
  30. DEXAMETHASONE. [Concomitant]
     Active Substance: DEXAMETHASONE
     Dosage: 40 MG, UNK
     Dates: start: 20170412, end: 20170412
  31. ENDOXAN [Concomitant]
     Active Substance: CYCLOPHOSPHAMIDE
     Dosage: UNK
     Dates: start: 20161121, end: 20161122
  32. CARFILZOMIB [Suspect]
     Active Substance: CARFILZOMIB
     Dosage: 37.94 MG, UNK
     Route: 041
     Dates: start: 20170426, end: 20170426
  33. REVLIMID [Suspect]
     Active Substance: LENALIDOMIDE
     Indication: PLASMA CELL MYELOMA
     Dosage: 25 MG, UNK
     Route: 048
     Dates: start: 20160901, end: 20160921
  34. REVLIMID [Suspect]
     Active Substance: LENALIDOMIDE
     Dosage: 5 MG, UNK
     Route: 048
     Dates: start: 20161027, end: 20161102
  35. REVLIMID [Suspect]
     Active Substance: LENALIDOMIDE
     Dosage: 5 MG, UNK
     Route: 048
     Dates: start: 20161103, end: 20161103
  36. REVLIMID [Suspect]
     Active Substance: LENALIDOMIDE
     Dosage: 15 UNK, UNK
     Route: 048
     Dates: start: 20170511, end: 20170531
  37. DEXAMETHASONE. [Concomitant]
     Active Substance: DEXAMETHASONE
     Dosage: 4 MG, UNK
     Dates: start: 20160916, end: 20160916
  38. DEXAMETHASONE. [Concomitant]
     Active Substance: DEXAMETHASONE
     Dosage: 40 MG, UNK
     Dates: start: 20160929, end: 20160929
  39. DEXAMETHASONE. [Concomitant]
     Active Substance: DEXAMETHASONE
     Dosage: 4 MG, UNK
     Dates: start: 20160930, end: 20160930
  40. DEXAMETHASONE. [Concomitant]
     Active Substance: DEXAMETHASONE
     Dosage: 4 MG, UNK
     Dates: start: 20161104, end: 20161104
  41. DEXAMETHASONE. [Concomitant]
     Active Substance: DEXAMETHASONE
     Dosage: 40 MG, UNK
     Dates: start: 20161110, end: 20161110
  42. DEXAMETHASONE. [Concomitant]
     Active Substance: DEXAMETHASONE
     Dosage: 4 MG, UNK
     Dates: start: 20170315, end: 20170315
  43. DEXAMETHASONE. [Concomitant]
     Active Substance: DEXAMETHASONE
     Dosage: 40 MG, UNK
     Dates: start: 20170324, end: 20170324
  44. DEXAMETHASONE. [Concomitant]
     Active Substance: DEXAMETHASONE
     Dosage: 4 MG, UNK
     Dates: start: 20170401, end: 20170401
  45. DEXAMETHASONE. [Concomitant]
     Active Substance: DEXAMETHASONE
     Dosage: 40 MG, UNK
     Dates: start: 20170419, end: 20170419
  46. CARFILZOMIB [Suspect]
     Active Substance: CARFILZOMIB
     Dosage: 37.77 MG, UNK
     Route: 041
     Dates: start: 20160908, end: 20160909
  47. CARFILZOMIB [Suspect]
     Active Substance: CARFILZOMIB
     Dosage: 28 MG, UNK
     Route: 041
     Dates: start: 20170324, end: 20170325
  48. DEXAMETHASONE. [Concomitant]
     Active Substance: DEXAMETHASONE
     Dosage: 4 MG, UNK
     Dates: start: 20161028, end: 20161028
  49. DEXAMETHASONE. [Concomitant]
     Active Substance: DEXAMETHASONE
     Dosage: 4 MG, UNK
     Dates: start: 20161111, end: 20161111
  50. CARFILZOMIB [Suspect]
     Active Substance: CARFILZOMIB
     Dosage: 37.94 MG, UNK
     Route: 041
     Dates: start: 20161110, end: 20161111
  51. CARFILZOMIB [Suspect]
     Active Substance: CARFILZOMIB
     Dosage: 28 MG, UNK
     Route: 041
     Dates: start: 20170331, end: 20170401
  52. REVLIMID [Suspect]
     Active Substance: LENALIDOMIDE
     Dosage: 5 MG, UNK
     Route: 048
     Dates: start: 20161110, end: 20161110
  53. DEXAMETHASONE. [Concomitant]
     Active Substance: DEXAMETHASONE
     Dosage: 40 MG, UNK
     Dates: start: 20161006, end: 20161006
  54. DEXAMETHASONE. [Concomitant]
     Active Substance: DEXAMETHASONE
     Dosage: 40 MG, UNK
     Dates: start: 20161013, end: 20161013
  55. DEXAMETHASONE. [Concomitant]
     Active Substance: DEXAMETHASONE
     Dosage: 40 MG, UNK
     Dates: start: 20170314, end: 20170314
  56. DEXAMETHASONE. [Concomitant]
     Active Substance: DEXAMETHASONE
     Dosage: 40 MG, UNK
     Dates: start: 20170426, end: 20170426
  57. DEXAMETHASONE. [Concomitant]
     Active Substance: DEXAMETHASONE
     Dosage: 40 MG, UNK
     Dates: start: 20170517, end: 20170517
  58. ALKERAN [Concomitant]
     Active Substance: MELPHALAN
     Dosage: UNK
     Dates: start: 20170110, end: 20170111
  59. VICCLOX [Concomitant]
     Active Substance: ACYCLOVIR SODIUM
     Dosage: UNK

REACTIONS (2)
  - White blood cell count decreased [Not Recovered/Not Resolved]
  - Platelet count decreased [Not Recovered/Not Resolved]

NARRATIVE: CASE EVENT DATE: 20160905
